FAERS Safety Report 8271638-9 (Version None)
Quarter: 2012Q2

REPORT INFORMATION
  Report Type: 
  Country: None (occurrence: None)
  Receive Date: 20120410
  Receipt Date: 20120403
  Transmission Date: 20120825
  Serious: Yes (Death)
  Sender: FDA-Public Use
  Company Number: IT-GLAXOSMITHKLINE-B0697999A

PATIENT
  Sex: Male

DRUGS (1)
  1. ALKERAN [Suspect]
     Indication: MULTIPLE MYELOMA
     Dosage: 800Z PER DAY
     Route: 042
     Dates: start: 20101221, end: 20101221

REACTIONS (4)
  - MULTIPLE MYELOMA [None]
  - MULTI-ORGAN FAILURE [None]
  - BRONCHOPNEUMONIA [None]
  - RESPIRATORY FAILURE [None]
